FAERS Safety Report 8061996-2 (Version None)
Quarter: 2012Q1

REPORT INFORMATION
  Report Type: 
  Country: None (occurrence: None)
  Receive Date: 20120123
  Receipt Date: 20120116
  Transmission Date: 20120608
  Serious: Yes (Death)
  Sender: FDA-Public Use
  Company Number: US-CELGENEUS-163-21880-12011559

PATIENT
  Sex: Male

DRUGS (4)
  1. CALCIUM + VITAMIN D [Concomitant]
     Route: 048
  2. LOVASTATIN [Concomitant]
     Dosage: 10 MILLIGRAM
     Route: 048
  3. REVLIMID [Suspect]
     Indication: MULTIPLE MYELOMA
     Dosage: 10 MILLIGRAM
     Route: 048
     Dates: start: 20110618
  4. MULTI-VITAMINS [Concomitant]
     Route: 048

REACTIONS (1)
  - DEATH [None]
